FAERS Safety Report 6683152-2 (Version None)
Quarter: 2010Q2

REPORT INFORMATION
  Report Type: 
  Country: None (occurrence: None)
  Receive Date: 20100415
  Receipt Date: 20100412
  Transmission Date: 20101027
  Serious: Yes (Hospitalization, Other)
  Sender: FDA-Public Use
  Company Number: TR-BRISTOL-MYERS SQUIBB COMPANY-15058662

PATIENT
  Age: 56 Year
  Sex: Female

DRUGS (3)
  1. COUMADIN [Suspect]
     Indication: PROPHYLAXIS
     Dosage: UNK-20JAN2010 22JAN2010-24JAN2010 (2 DAYS)
     Route: 048
     Dates: end: 20100124
  2. ENOXAPARIN SODIUM [Suspect]
     Indication: PROPHYLAXIS
     Route: 058
     Dates: start: 20100122, end: 20100124
  3. TRENTAL [Concomitant]
     Indication: LIMB DISCOMFORT

REACTIONS (5)
  - ABDOMINAL DISCOMFORT [None]
  - ABDOMINAL DISTENSION [None]
  - ECCHYMOSIS [None]
  - INTRA-ABDOMINAL HAEMORRHAGE [None]
  - UMBILICAL HERNIA [None]
